FAERS Safety Report 9289667 (Version 1)
Quarter: 2013Q2

REPORT INFORMATION
  Report Type: Spontaneous
  Country: US (occurrence: US)
  Receive Date: 20130515
  Receipt Date: 20130515
  Transmission Date: 20140414
  Serious: No
  Sender: FDA-Public Use
  Company Number: US-BIOGENIDEC-2013BI042250

PATIENT
  Sex: Female

DRUGS (1)
  1. TYSABRI [Suspect]
     Indication: MULTIPLE SCLEROSIS
     Route: 042

REACTIONS (8)
  - Feeling abnormal [Unknown]
  - Memory impairment [Unknown]
  - Tearfulness [Unknown]
  - Anger [Unknown]
  - Emotional disorder [Unknown]
  - Fear [Unknown]
  - Psychiatric symptom [Unknown]
  - Crying [Unknown]
